FAERS Safety Report 18217507 (Version 1)
Quarter: 2020Q3

REPORT INFORMATION
  Report Type: Spontaneous
  Country: US (occurrence: US)
  Receive Date: 20200901
  Receipt Date: 20200901
  Transmission Date: 20201103
  Serious: Yes (Other)
  Sender: FDA-Public Use
  Company Number: US-EMCURE PHARMACEUTICALS LTD-2020-EPL-001204

PATIENT
  Age: 43 Year
  Sex: Female

DRUGS (4)
  1. DOXORUBICIN [Concomitant]
     Active Substance: DOXORUBICIN
     Indication: LEIOMYOSARCOMA
     Dosage: 18.75 MILLIGRAM/SQ. METER,SIX CYCLES
  2. GEMCITABINE HYDROCHLORIDE. [Suspect]
     Active Substance: GEMCITABINE HYDROCHLORIDE
     Indication: LEIOMYOSARCOMA
     Dosage: 900 MILLIGRAM/SQ. METER,FIVE CYCLES
  3. IFOSFAMIDE. [Concomitant]
     Active Substance: IFOSFAMIDE
     Indication: LEIOMYOSARCOMA
     Dosage: 1250 MILLIGRAM/SQ. METER,SIX CYCLES
  4. DOCETAXEL. [Concomitant]
     Active Substance: DOCETAXEL
     Indication: LEIOMYOSARCOMA
     Dosage: 75 MILLIGRAM/SQ. METER,FIVE CYCLES

REACTIONS (3)
  - Off label use [Unknown]
  - Radiation necrosis [Recovering/Resolving]
  - Muscle necrosis [Recovering/Resolving]
